FAERS Safety Report 5975520-9 (Version None)
Quarter: 2008Q4

REPORT INFORMATION
  Report Type: 
  Country: None (occurrence: None)
  Receive Date: 20081202
  Receipt Date: 20080422
  Transmission Date: 20090506
  Serious: Yes (Other)
  Sender: FDA-Public Use
  Company Number: A0725162A

PATIENT
  Age: 8 Year
  Sex: Male
  Weight: 38.6 kg

DRUGS (5)
  1. AMOXICILLIN + CLAVULANATE POTASSIUM [Suspect]
     Route: 048
     Dates: start: 20060101, end: 20060101
  2. AMOXICILLIN [Suspect]
     Route: 048
     Dates: start: 20060101, end: 20060101
  3. AZITHROMYCIN [Suspect]
     Route: 048
     Dates: start: 20060101, end: 20060101
  4. OMNICEF [Suspect]
     Route: 048
     Dates: start: 20060401, end: 20060401
  5. NO CONCURRENT MEDICATION [Concomitant]

REACTIONS (1)
  - CLOSTRIDIAL INFECTION [None]
